FAERS Safety Report 24302133 (Version 1)
Quarter: 2024Q3

REPORT INFORMATION
  Report Type: Spontaneous
  Country: US (occurrence: None)
  Receive Date: 20240909
  Receipt Date: 20240909
  Transmission Date: 20241016
  Serious: Yes (Hospitalization)
  Sender: Public
  Company Number: None

PATIENT
  Sex: Male

DRUGS (11)
  1. CYCLOSPORINE MODIFIED [Suspect]
     Active Substance: CYCLOSPORINE
     Indication: Aplastic anaemia
     Dosage: FREQ: TAKE 1 ML BY MOUTH EVERY MORNING AND 1 ML BY MOUTH BEFORE BEDTIME.
     Route: 048
     Dates: start: 20240402
  2. ACYCLOVIR [Concomitant]
     Active Substance: ACYCLOVIR
  3. AMLODIPINE [Concomitant]
     Active Substance: AMLODIPINE BESYLATE
  4. CYCLOSPORINE [Concomitant]
     Active Substance: CYCLOSPORINE
  5. FLUCONAZOLE [Concomitant]
     Active Substance: FLUCONAZOLE
  6. KINRIX [Concomitant]
     Active Substance: DIPHTHERIA AND TETANUS TOXOIDS AND ACELLULAR PERTUSSIS ADSORBED AND INACTIVATED POLIOVIRUS VACCINE
  7. LEVOFLOXACIN [Concomitant]
     Active Substance: LEVOFLOXACIN
  8. MAGNESIUM [Concomitant]
     Active Substance: MAGNESIUM
  9. PEPCID AC [Concomitant]
     Active Substance: FAMOTIDINE
  10. PREDNISONE [Concomitant]
     Active Substance: PREDNISONE
  11. TRIAMCIONOLONE ACETONIDE [Concomitant]

REACTIONS (1)
  - Pyrexia [None]
